FAERS Safety Report 5574034-8 (Version None)
Quarter: 2007Q4

REPORT INFORMATION
  Report Type: 
  Country: None (occurrence: None)
  Receive Date: 20071221
  Receipt Date: 20071214
  Transmission Date: 20080405
  Serious: Yes (Other)
  Sender: FDA-Public Use
  Company Number: US021771

PATIENT
  Age: 28 Year
  Sex: Male

DRUGS (8)
  1. TRISENOX [Suspect]
     Indication: ACUTE PROMYELOCYTIC LEUKAEMIA
     Dosage: 12 MG QD; INTRAVENOUS DRIP
     Route: 041
     Dates: start: 20070830, end: 20070905
  2. TRISENOX [Suspect]
     Indication: ACUTE PROMYELOCYTIC LEUKAEMIA
     Dosage: 10 MG 0.125 MG/KG QD; INTRAVENOUS DRIP
     Route: 041
     Dates: start: 20070818, end: 20071020
  3. DALTEPARIN SODIUM [Concomitant]
  4. SULFAMETHOXAZOLE AND TRIMETHOPRIM [Concomitant]
  5. FLUCONAZOLE [Concomitant]
  6. OMEPRAZOLE [Concomitant]
  7. ROXATIDINE ACETATE HCL [Concomitant]
  8. FAMOTIDINE [Concomitant]

REACTIONS (7)
  - ALANINE AMINOTRANSFERASE INCREASED [None]
  - ASPARTATE AMINOTRANSFERASE INCREASED [None]
  - BLOOD LACTATE DEHYDROGENASE INCREASED [None]
  - ELECTROCARDIOGRAM QT PROLONGED [None]
  - GAMMA-GLUTAMYLTRANSFERASE INCREASED [None]
  - HAEMOGLOBIN DECREASED [None]
  - TONSILLITIS [None]
